FAERS Safety Report 9371720 (Version 3)
Quarter: 2013Q3

REPORT INFORMATION
  Report Type: Spontaneous
  Country: US (occurrence: US)
  Receive Date: 20130627
  Receipt Date: 20130830
  Transmission Date: 20140515
  Serious: Yes (Other)
  Sender: FDA-Public Use
  Company Number: US-PFIZER INC-2013187536

PATIENT
  Age: 31 Year
  Sex: Female
  Weight: 62.85 kg

DRUGS (3)
  1. DEPO-PROVERA [Suspect]
     Indication: CONTRACEPTION
     Dosage: 150 MG, ONCE IN EVERY 12 WEEKS
     Route: 030
     Dates: start: 20130213
  2. DEPO-PROVERA [Suspect]
     Dosage: 150 MG, EVERY 3 MONTHS
     Route: 030
     Dates: end: 20130507
  3. MULTIVITAMINS [Concomitant]
     Dosage: 1 DF, 1X/DAY
     Dates: start: 20130507

REACTIONS (2)
  - Drug ineffective [Unknown]
  - Unintended pregnancy [Unknown]
